FAERS Safety Report 4503507-1 (Version None)
Quarter: 2004Q4

REPORT INFORMATION
  Report Type: 
  Country: None (occurrence: None)
  Receive Date: 20041112
  Receipt Date: 20041102
  Transmission Date: 20050328
  Serious: Yes (Death, Hospitalization)
  Sender: FDA-Public Use
  Company Number: 2004242400NL

PATIENT
  Age: 52 Year
  Sex: Female

DRUGS (4)
  1. CELECOXIB VS PLACEBO (CELECOXIB VS PLACEBO) CAPSULE [Suspect]
     Indication: NON-SMALL CELL LUNG CANCER
     Dosage: 400 MG, BID, ORAL
     Route: 048
     Dates: start: 20040801
  2. COMPARATOR-DOCETAXEL (DOCETAXEL) INJECTION [Suspect]
     Indication: NON-SMALL CELL LUNG CANCER
     Dosage: 125 MG, CYCLIC, EVERY 3 WKS, IV
     Route: 042
     Dates: start: 20040801
  3. CARBOPLATIN [Suspect]
     Indication: NON-SMALL CELL LUNG CANCER
     Dosage: 535 MG, CYCLIC, IV
     Route: 042
     Dates: start: 20040801
  4. SERETIDE MITE (FLUTICASONE PROPIONATE) [Concomitant]

REACTIONS (9)
  - ABDOMINAL PAIN [None]
  - ACUTE RESPIRATORY FAILURE [None]
  - AORTIC THROMBOSIS [None]
  - DIARRHOEA [None]
  - MYOCARDIAL ISCHAEMIA [None]
  - NAUSEA [None]
  - PARESIS [None]
  - PYREXIA [None]
  - SUDDEN DEATH [None]
